FAERS Safety Report 4400799-4 (Version None)
Quarter: 2004Q3

REPORT INFORMATION
  Report Type: 
  Country: None (occurrence: None)
  Receive Date: 20040907
  Receipt Date: 20030611
  Transmission Date: 20050211
  Serious: No
  Sender: FDA-Public Use
  Company Number: US-BRISTOL-MYERS SQUIBB COMPANY-12299590

PATIENT
  Age: 79 Year
  Sex: Male
  Weight: 98 kg

DRUGS (3)
  1. COUMADIN [Suspect]
     Dosage: DOSE VAL:  1/2 TABLET MON THRU FRI, ALTERNATING WITH 1 TABLET SAT AND SUN.
     Route: 048
  2. HYTRIN [Concomitant]
  3. TIAZAC [Concomitant]

REACTIONS (5)
  - CONTUSION [None]
  - MUSCLE CRAMP [None]
  - OEDEMA PERIPHERAL [None]
  - PENIS DISORDER [None]
  - POLLAKIURIA [None]
